FAERS Safety Report 8433298-3 (Version None)
Quarter: 2012Q2

REPORT INFORMATION
  Report Type: 
  Country: None (occurrence: None)
  Receive Date: 20120613
  Receipt Date: 20120606
  Transmission Date: 20120825
  Serious: Yes (Hospitalization, Other)
  Sender: FDA-Public Use
  Company Number: US-ROCHE-784190

PATIENT
  Sex: Male
  Weight: 56.75 kg

DRUGS (2)
  1. ACCUTANE [Suspect]
     Route: 065
     Dates: start: 20020210, end: 20020318
  2. ACCUTANE [Suspect]
     Indication: ACNE
     Route: 048
     Dates: start: 20001124, end: 20010412

REACTIONS (5)
  - DEPRESSION [None]
  - CROHN'S DISEASE [None]
  - COLITIS ULCERATIVE [None]
  - STRESS [None]
  - INFLAMMATORY BOWEL DISEASE [None]
